FAERS Safety Report 20359619 (Version 4)
Quarter: 2022Q2

REPORT INFORMATION
  Report Type: Report from Study
  Country: US (occurrence: None)
  Receive Date: 20220121
  Receipt Date: 20220419
  Transmission Date: 20220721
  Serious: Yes (Hospitalization, Other)
  Sender: FDA-Public Use
  Company Number: US-ROCHE-2799367

PATIENT
  Age: 80 Year
  Sex: Female
  Weight: 71.4 kg

DRUGS (3)
  1. ATEZOLIZUMAB [Suspect]
     Active Substance: ATEZOLIZUMAB
     Indication: Bladder transitional cell carcinoma
     Dosage: LAST DOSE OF ATEZOLIZUMAB ON 20/OCT/2020?LAST ADMINISTERED DATE:23-MAR-2021
     Route: 041
     Dates: start: 20200929, end: 20201020
  2. CISPLATIN [Suspect]
     Active Substance: CISPLATIN
     Indication: Bladder transitional cell carcinoma
     Dosage: FOR SIX WEEKS?LAST ADMINISTERED DATE:03-NOV-2020
     Route: 042
     Dates: start: 20200929, end: 20201103
  3. ELIQUIS [Concomitant]
     Active Substance: APIXABAN

REACTIONS (5)
  - Lymphocyte count decreased [Recovered/Resolved]
  - Anaemia [Recovered/Resolved]
  - Cystitis noninfective [Recovered/Resolved]
  - Haematuria [Recovered/Resolved]
  - Urinary tract infection [Unknown]

NARRATIVE: CASE EVENT DATE: 20201104
